FAERS Safety Report 17552758 (Version 1)
Quarter: 2020Q1

REPORT INFORMATION
  Report Type: Spontaneous
  Country: FR (occurrence: FR)
  Receive Date: 20200317
  Receipt Date: 20200317
  Transmission Date: 20200409
  Serious: Yes (Other)
  Sender: FDA-Public Use
  Company Number: FR-JNJFOC-20200315933

PATIENT
  Age: 70 Year
  Sex: Female

DRUGS (9)
  1. EFFERALGAN [Concomitant]
     Active Substance: ACETAMINOPHEN
     Indication: PAIN
     Dosage: 3 DOSAGE FORM, 1/DAY
     Route: 065
     Dates: start: 20171211, end: 201904
  2. PROPRANOLOL [Concomitant]
     Active Substance: PROPRANOLOL HYDROCHLORIDE
     Indication: HYPERTENSION
     Dosage: UNK
     Route: 065
  3. TRAMADOL HYDROCHLORIDE. [Suspect]
     Active Substance: TRAMADOL HYDROCHLORIDE
     Dosage: 0.5 DOSAGE FORM, EVERY 8 HRS
     Route: 065
     Dates: start: 201908
  4. AMLOR [Concomitant]
     Active Substance: AMLODIPINE BESYLATE
     Indication: HYPERTENSION
     Dosage: UNK
     Route: 065
  5. TRAMADOL HYDROCHLORIDE. [Suspect]
     Active Substance: TRAMADOL HYDROCHLORIDE
     Dosage: UNK UNK, 2/DAY
     Route: 065
     Dates: start: 2020
  6. TRAMADOL HYDROCHLORIDE. [Suspect]
     Active Substance: TRAMADOL HYDROCHLORIDE
     Dosage: UNK UNK, AS NEEDED
     Route: 065
     Dates: end: 201912
  7. TRAMADOL HYDROCHLORIDE. [Suspect]
     Active Substance: TRAMADOL HYDROCHLORIDE
     Dosage: 0.25 DOSAGE FORM, 1/DAY
     Route: 065
     Dates: start: 201912
  8. TRAMADOL HYDROCHLORIDE. [Suspect]
     Active Substance: TRAMADOL HYDROCHLORIDE
     Indication: PROCEDURAL PAIN
     Dosage: 3 DOSAGE FORM, 1/DAY
     Route: 065
     Dates: start: 201712, end: 201904
  9. TRAMADOL HYDROCHLORIDE. [Suspect]
     Active Substance: TRAMADOL HYDROCHLORIDE
     Indication: PROCEDURAL PAIN
     Dosage: 3 DOSAGE FORM, 1/DAY
     Route: 065
     Dates: start: 201904

REACTIONS (6)
  - Drug abuse [Unknown]
  - Withdrawal syndrome [Recovering/Resolving]
  - Fatigue [Recovering/Resolving]
  - Drug dependence [Recovering/Resolving]
  - Depression [Unknown]
  - Agitation [Unknown]

NARRATIVE: CASE EVENT DATE: 2019
